FAERS Safety Report 7214999-1 (Version None)
Quarter: 2011Q1

REPORT INFORMATION
  Report Type: 
  Country: None (occurrence: None)
  Receive Date: 20110107
  Receipt Date: 20100701
  Transmission Date: 20110831
  Serious: No
  Sender: FDA-Public Use
  Company Number: A0868172A

PATIENT
  Age: 79 Year
  Sex: Female

DRUGS (6)
  1. VITAMIN B [Concomitant]
  2. LOVAZA [Suspect]
     Dosage: 2CAP TWICE PER DAY
     Route: 048
  3. CALCIUM [Concomitant]
  4. VITAMIN D [Concomitant]
  5. PAIN MEDICATION [Concomitant]
  6. COUMADIN [Concomitant]

REACTIONS (2)
  - FAECES DISCOLOURED [None]
  - CHROMATURIA [None]
